FAERS Safety Report 25078476 (Version 1)
Quarter: 2025Q1

REPORT INFORMATION
  Report Type: Spontaneous
  Country: US (occurrence: US)
  Receive Date: 20250314
  Receipt Date: 20250314
  Transmission Date: 20250409
  Serious: No
  Sender: PFIZER
  Company Number: US-PFIZER INC-202500055947

PATIENT
  Age: 43 Year
  Sex: Male

DRUGS (2)
  1. VELSIPITY [Suspect]
     Active Substance: ETRASIMOD ARGININE
     Dates: start: 20240117
  2. VELSIPITY [Suspect]
     Active Substance: ETRASIMOD ARGININE
     Dates: start: 20240226

REACTIONS (7)
  - Chest pain [Unknown]
  - Fatigue [Unknown]
  - Palpitations [Unknown]
  - COVID-19 [Unknown]
  - Bowel movement irregularity [Unknown]
  - Muscular weakness [Unknown]
  - Product dose omission in error [Unknown]

NARRATIVE: CASE EVENT DATE: 20240101
